FAERS Safety Report 9675878 (Version 1)
Quarter: 2013Q4

REPORT INFORMATION
  Report Type: Spontaneous
  Country: HR (occurrence: HR)
  Receive Date: 20131107
  Receipt Date: 20131107
  Transmission Date: 20140711
  Serious: Yes (Life-Threatening)
  Sender: FDA-Public Use
  Company Number: HR-ROXANE LABORATORIES, INC.-2013-RO-01783RO

PATIENT
  Age: 14 Year
  Sex: Female

DRUGS (2)
  1. OXCARBAZEPINE [Suspect]
     Indication: PARTIAL SEIZURES
  2. VALPROATE [Suspect]
     Indication: PARTIAL SEIZURES

REACTIONS (1)
  - Drug reaction with eosinophilia and systemic symptoms [Recovered/Resolved]
